FAERS Safety Report 8962234 (Version 1)
Quarter: 2012Q4

REPORT INFORMATION
  Report Type: 
  Country: US (occurrence: US)
  Receive Date: 20121212
  Receipt Date: 20121212
  Transmission Date: 20130627
  Serious: No
  Sender: FDA-Public Use
  Company Number: US-TEVA-375326USA

PATIENT
  Sex: Male

DRUGS (2)
  1. NUVIGIL [Suspect]
     Indication: SLEEP APNOEA SYNDROME
     Dosage: 150 Milligram Daily;
     Route: 048
     Dates: start: 20121204
  2. NUVIGIL [Suspect]
     Dosage: (1.5 tabs)
     Route: 048
     Dates: start: 20121206

REACTIONS (2)
  - Fatigue [Unknown]
  - Drug ineffective [Unknown]
